FAERS Safety Report 7424606-0 (Version None)
Quarter: 2011Q2

REPORT INFORMATION
  Report Type: 
  Country: None (occurrence: None)
  Receive Date: 20110419
  Receipt Date: 20110411
  Transmission Date: 20111010
  Serious: Yes (Hospitalization)
  Sender: FDA-Public Use
  Company Number: US-B.I. PHARMACEUTICALS,INC./RIDGEFIELD-2011-BP-05066BP

PATIENT
  Sex: Female

DRUGS (7)
  1. CARDIZEM [Concomitant]
     Dosage: 180 MG
  2. PRADAXA [Suspect]
     Indication: ATRIAL FIBRILLATION
     Dosage: 300 MG
     Route: 048
     Dates: start: 20110203
  3. PRADAXA [Suspect]
     Indication: ANTICOAGULANT THERAPY
  4. RYTHMOL [Concomitant]
  5. FISH OIL [Concomitant]
  6. HYDROCHLOROTHIAZIDE [Suspect]
     Dosage: 25 MG
  7. FEXOFENADINE [Concomitant]
     Dosage: 180 MG

REACTIONS (6)
  - DIZZINESS [None]
  - MUSCLE TWITCHING [None]
  - ASTHENIA [None]
  - VOMITING [None]
  - DIARRHOEA [None]
  - MALAISE [None]
